FAERS Safety Report 4912465-7 (Version None)
Quarter: 2006Q1

REPORT INFORMATION
  Report Type: 
  Country: None (occurrence: None)
  Receive Date: 20060215
  Receipt Date: 20050415
  Transmission Date: 20060701
  Serious: No
  Sender: FDA-Public Use
  Company Number: US-GLAXOSMITHKLINE-A0554389A

PATIENT
  Age: 54 Year
  Sex: Female

DRUGS (2)
  1. VALTREX [Suspect]
     Indication: HERPES ZOSTER
     Dosage: 500MG THREE TIMES PER DAY
     Route: 048
     Dates: start: 20050413
  2. NO CONCURRENT MEDICATION [Concomitant]

REACTIONS (9)
  - CHILLS [None]
  - EYE SWELLING [None]
  - HEADACHE [None]
  - NAUSEA [None]
  - PAIN [None]
  - PARAESTHESIA [None]
  - PYREXIA [None]
  - RASH [None]
  - RASH PAPULAR [None]
